FAERS Safety Report 23272612 (Version 1)
Quarter: 2023Q4

REPORT INFORMATION
  Report Type: Spontaneous
  Country: US (occurrence: US)
  Receive Date: 20231207
  Receipt Date: 20231207
  Transmission Date: 20240109
  Serious: Yes (Other)
  Sender: FDA-Public Use
  Company Number: US-PFIZER INC-PV202200125981

PATIENT
  Age: 51 Year
  Sex: Female
  Weight: 106.96 kg

DRUGS (1)
  1. FRAGMIN [Suspect]
     Active Substance: DALTEPARIN SODIUM
     Indication: Cerebrovascular accident
     Dosage: 18000 IU, DAILY
     Route: 058
     Dates: start: 2019

REACTIONS (4)
  - Blindness [Unknown]
  - Circumstance or information capable of leading to medication error [Unknown]
  - Drug effective for unapproved indication [Unknown]
  - Off label use [Unknown]
